FAERS Safety Report 6953046-3 (Version None)
Quarter: 2010Q3

REPORT INFORMATION
  Report Type: 
  Country: None (occurrence: None)
  Receive Date: 20100829
  Receipt Date: 20100524
  Transmission Date: 20110219
  Serious: No
  Sender: FDA-Public Use
  Company Number: US-ABBOTT-10P-163-0647797-00

PATIENT
  Sex: Female

DRUGS (10)
  1. NIASPAN [Suspect]
     Indication: BLOOD CHOLESTEROL INCREASED
     Route: 048
     Dates: start: 20100521
  2. NIASPAN [Suspect]
     Indication: LOW DENSITY LIPOPROTEIN INCREASED
  3. SINGULAIR [Concomitant]
     Indication: PROPHYLAXIS
     Dates: start: 20070101
  4. SINGULAIR [Concomitant]
     Indication: SINUSITIS
  5. NASONEX [Concomitant]
     Indication: PROPHYLAXIS
     Route: 045
     Dates: start: 20070101
  6. NASONEX [Concomitant]
     Indication: SINUSITIS
  7. ZOCOR [Concomitant]
     Indication: BLOOD CHOLESTEROL INCREASED
     Route: 048
  8. ZOCOR [Concomitant]
     Indication: LOW DENSITY LIPOPROTEIN INCREASED
  9. SIMVASTATIN [Concomitant]
     Indication: BLOOD CHOLESTEROL INCREASED
     Route: 048
  10. SIMVASTATIN [Concomitant]
     Indication: LOW DENSITY LIPOPROTEIN INCREASED

REACTIONS (1)
  - NASAL CONGESTION [None]
